FAERS Safety Report 26107621 (Version 1)
Quarter: 2025Q4

REPORT INFORMATION
  Report Type: Spontaneous
  Country: US (occurrence: US)
  Receive Date: 20251201
  Receipt Date: 20251201
  Transmission Date: 20260117
  Serious: Yes (Hospitalization)
  Sender: MYLAN
  Company Number: US-MYLANLABS-2025M1100571

PATIENT
  Age: 63 Year
  Sex: Male

DRUGS (6)
  1. TRETINOIN [Suspect]
     Active Substance: TRETINOIN
     Indication: Acute promyelocytic leukaemia
     Dosage: UNK, RECEIVED?TRETINOIN AS INDUCTION THERAPY
  2. TRETINOIN [Suspect]
     Active Substance: TRETINOIN
     Dosage: UNK, ADMINISTERED 2 WEEKS ON AND 2 WEEKS AS MAINTENANCE THERAPY
  3. ARSENIC TRIOXIDE [Suspect]
     Active Substance: ARSENIC TRIOXIDE
     Indication: Acute promyelocytic leukaemia
     Dosage: UNK, RECEIVED ARSENIC-TRIOXIDE AS INDUCTION CHEMOTHERAPY
  4. ARSENIC TRIOXIDE [Suspect]
     Active Substance: ARSENIC TRIOXIDE
     Dosage: UNK UNK, CYCLE (ARSENIC TRIOXIDE OF 50% DOSE-REDUCED WAS ADMINISTERED) (3 CYCLE)
  5. DEXAMETHASONE [Concomitant]
     Active Substance: DEXAMETHASONE
     Indication: Differentiation syndrome
     Dosage: UNK
  6. HYDROXYUREA [Concomitant]
     Active Substance: HYDROXYUREA
     Indication: Differentiation syndrome
     Dosage: UNK

REACTIONS (3)
  - Guillain-Barre syndrome [Recovering/Resolving]
  - Fall [Recovering/Resolving]
  - Off label use [Unknown]
